FAERS Safety Report 13481263 (Version 2)
Quarter: 2017Q2

REPORT INFORMATION
  Report Type: Report from Study
  Country: US (occurrence: US)
  Receive Date: 20170425
  Receipt Date: 20170503
  Transmission Date: 20170830
  Serious: No
  Sender: FDA-Public Use
  Company Number: US-ASTRAZENECA-2017SE39870

PATIENT
  Sex: Male
  Weight: 95.3 kg

DRUGS (3)
  1. BYDUREON [Suspect]
     Active Substance: EXENATIDE
     Indication: DIABETES MELLITUS
     Route: 058
     Dates: start: 20170210, end: 20170406
  2. LANTUS [Concomitant]
     Active Substance: INSULIN GLARGINE
  3. HEMOLOG [Concomitant]

REACTIONS (4)
  - Injection site mass [Unknown]
  - Headache [Unknown]
  - Diabetes mellitus inadequate control [Unknown]
  - Nausea [Unknown]
